FAERS Safety Report 10185126 (Version 1)
Quarter: 2014Q2

REPORT INFORMATION
  Report Type: Spontaneous
  Country: CN (occurrence: CN)
  Receive Date: 20140521
  Receipt Date: 20140521
  Transmission Date: 20141212
  Serious: Yes (Other)
  Sender: FDA-Public Use
  Company Number: CN-BAYER-2014-070593

PATIENT
  Sex: Female

DRUGS (1)
  1. CANESTEN (KAINITING) [Suspect]
     Dosage: UNK
     Dates: start: 20140511

REACTIONS (2)
  - Thrombosis [None]
  - Maternal exposure during pregnancy [None]
